FAERS Safety Report 9386246 (Version 1)
Quarter: 2013Q3

REPORT INFORMATION
  Report Type: Spontaneous
  Country: NL (occurrence: NL)
  Receive Date: 20130708
  Receipt Date: 20130708
  Transmission Date: 20140515
  Serious: Yes (Hospitalization, Other)
  Sender: FDA-Public Use
  Company Number: NL-PAR PHARMACEUTICAL, INC-2013SCPR006021

PATIENT
  Sex: 0

DRUGS (7)
  1. OLANZAPINE [Suspect]
     Indication: DELIRIUM
     Dosage: 5 MG, QD
     Route: 065
  2. OLANZAPINE [Suspect]
     Dosage: UNK UNK, UNKNOWN
     Route: 065
  3. PRAMIPEXOLE [Suspect]
     Indication: RESTLESS LEGS SYNDROME
     Dosage: 0.125 MG, / DAY IN THE EVENING
     Route: 065
  4. LITHIUM [Concomitant]
     Indication: BIPOLAR I DISORDER
     Dosage: UNK, UNKNOWN
     Route: 065
  5. MIRTAZAPINE [Concomitant]
     Indication: BIPOLAR I DISORDER
     Dosage: 30 MG, QD
     Route: 065
  6. MIRTAZAPINE [Concomitant]
     Dosage: 15 MG, QD
     Route: 065
  7. OXAZEPAM [Concomitant]
     Indication: HYPOMANIA
     Dosage: 10-30 MG/ DAY
     Route: 065

REACTIONS (2)
  - Drug interaction [Unknown]
  - Mania [Recovered/Resolved]
